FAERS Safety Report 16516054 (Version 5)
Quarter: 2019Q3

REPORT INFORMATION
  Report Type: Spontaneous
  Country: US (occurrence: US)
  Receive Date: 20190702
  Receipt Date: 20190902
  Transmission Date: 20191004
  Serious: Yes (Hospitalization)
  Sender: FDA-Public Use
  Company Number: US-PFIZER INC-2019277069

PATIENT
  Age: 58 Year
  Sex: Male
  Weight: 65.99 kg

DRUGS (4)
  1. SODIUM BICARBONATE. [Suspect]
     Active Substance: SODIUM BICARBONATE
     Indication: ANAESTHESIA
     Dosage: UNK (8.4% 1MEQ/ML 50ML/ 2-4 ML)
     Dates: start: 20190111
  2. LIDOCAINE HCL AND EPINEPHRINE [EPINEPHRINE;LIDOCAINE HYDROCHLORIDE] [Concomitant]
     Dosage: UNK
     Dates: start: 20190111
  3. LIDOCAINE. [Concomitant]
     Active Substance: LIDOCAINE
     Dosage: UNK
  4. LIDOCAINE. [Concomitant]
     Active Substance: LIDOCAINE
     Dosage: UNK

REACTIONS (4)
  - Emotional disorder [Recovered/Resolved]
  - Poor quality product administered [Unknown]
  - Injection site pain [Recovered/Resolved]
  - Product contamination physical [Unknown]

NARRATIVE: CASE EVENT DATE: 201903
